FAERS Safety Report 24433145 (Version 2)
Quarter: 2024Q4

REPORT INFORMATION
  Report Type: Spontaneous
  Country: US (occurrence: US)
  Receive Date: 20241014
  Receipt Date: 20241025
  Transmission Date: 20250114
  Serious: Yes (Death)
  Sender: TEVA
  Company Number: US-TEVA-VS-3252533

PATIENT
  Age: 72 Year
  Sex: Female

DRUGS (2)
  1. METHYLPREDNISOLONE [Suspect]
     Active Substance: METHYLPREDNISOLONE
     Indication: Granulomatosis with polyangiitis
     Route: 065
  2. RITUXIMAB [Suspect]
     Active Substance: RITUXIMAB
     Indication: Granulomatosis with polyangiitis
     Route: 065

REACTIONS (1)
  - Drug ineffective [Fatal]
